FAERS Safety Report 18622664 (Version 1)
Quarter: 2020Q4

REPORT INFORMATION
  Report Type: Spontaneous
  Country: US (occurrence: US)
  Receive Date: 20201216
  Receipt Date: 20201216
  Transmission Date: 20210114
  Serious: Yes (Death)
  Sender: FDA-Public Use
  Company Number: None

PATIENT
  Age: 42 Year
  Sex: Male

DRUGS (6)
  1. ELIQUIS [Concomitant]
     Active Substance: APIXABAN
  2. BUPROPION. [Concomitant]
     Active Substance: BUPROPION
  3. NADOLOL. [Concomitant]
     Active Substance: NADOLOL
  4. ACYCLOVIR. [Concomitant]
     Active Substance: ACYCLOVIR
  5. PREDNISONE. [Concomitant]
     Active Substance: PREDNISONE
  6. PROMACTA [Suspect]
     Active Substance: ELTROMBOPAG OLAMINE
     Indication: ANAEMIA
     Route: 048
     Dates: start: 20171228

REACTIONS (1)
  - Death [None]
